FAERS Safety Report 8221391-X (Version None)
Quarter: 2012Q1

REPORT INFORMATION
  Report Type: 
  Country: None (occurrence: None)
  Receive Date: 20120320
  Receipt Date: 20120316
  Transmission Date: 20120608
  Serious: Yes (Hospitalization)
  Sender: FDA-Public Use
  Company Number: PHHY2012NL020572

PATIENT
  Sex: Male
  Weight: 98.6 kg

DRUGS (7)
  1. SUTENT [Suspect]
     Dosage: 50 MG, QD
     Route: 048
     Dates: start: 20111201
  2. OMEPRAZOLE [Concomitant]
     Dosage: 20 MG, PRN ONCE DAILY
     Dates: start: 20110901
  3. TRAMADOL HCL [Concomitant]
     Indication: PAIN
     Dosage: 50 MG, PRN
  4. ACETAMINOPHEN [Concomitant]
     Dosage: 1.5 MG 4 TIMES PER DAY
  5. LYRICA [Concomitant]
     Indication: PAIN
     Dosage: 75 MG 6 TIMES PER DAY
     Dates: start: 20110901
  6. ZOMETA [Suspect]
     Indication: METASTASES TO BONE
     Dosage: 4 MG/100 ML ONCE EVERY 28 DAYS
     Route: 042
     Dates: start: 20110905
  7. ZOMETA [Suspect]
     Dosage: 4 MG/100 ML ONCE EVERY 28 DAYS
     Route: 042
     Dates: start: 20120201

REACTIONS (7)
  - VOMITING [None]
  - DIARRHOEA [None]
  - MALAISE [None]
  - YELLOW SKIN [None]
  - MUCOUS MEMBRANE DISORDER [None]
  - DEHYDRATION [None]
  - HYPERTENSION [None]
